FAERS Safety Report 5694491-6 (Version None)
Quarter: 2008Q2

REPORT INFORMATION
  Report Type: 
  Country: None (occurrence: None)
  Receive Date: 20080404
  Receipt Date: 20080326
  Transmission Date: 20081010
  Serious: Yes (Other)
  Sender: FDA-Public Use
  Company Number: FR-ELI_LILLY_AND_COMPANY-FR200801005408

PATIENT
  Age: 62 Year
  Sex: Female
  Weight: 51 kg

DRUGS (2)
  1. GEMZAR [Suspect]
     Indication: PANCREATIC CARCINOMA METASTATIC
     Dosage: 500 MG/M2, OTHER
     Route: 042
     Dates: start: 20061212
  2. GEMZAR [Suspect]
     Dosage: 500 MG/M2, OTHER
     Route: 042
     Dates: end: 20071207

REACTIONS (5)
  - GENERAL PHYSICAL HEALTH DETERIORATION [None]
  - GENERALISED OEDEMA [None]
  - HYPOALBUMINAEMIA [None]
  - MALNUTRITION [None]
  - THROMBOCYTOPENIA [None]
